FAERS Safety Report 9174283 (Version 2)
Quarter: 2013Q1

REPORT INFORMATION
  Report Type: Spontaneous
  Country: US (occurrence: None)
  Receive Date: 20130313
  Receipt Date: 20130318
  Transmission Date: 20140127
  Serious: Yes (Other)
  Sender: FDA-Public Use
  Company Number: JPI-P-030274

PATIENT
  Age: 10 Year
  Sex: Male

DRUGS (1)
  1. XYREM [Suspect]
     Indication: NARCOLEPSY
     Dosage: (2.25 GM,2 IN 1 D)
     Route: 048
     Dates: start: 20130222

REACTIONS (11)
  - Vomiting [None]
  - Faecal incontinence [None]
  - Urinary incontinence [None]
  - Catatonia [None]
  - Unresponsive to stimuli [None]
  - Crying [None]
  - Moaning [None]
  - Confusional state [None]
  - Dysstasia [None]
  - Catatonia [None]
  - Memory impairment [None]
